FAERS Safety Report 11829986 (Version 1)
Quarter: 2015Q4

REPORT INFORMATION
  Report Type: Spontaneous
  Country: HR (occurrence: HR)
  Receive Date: 20151213
  Receipt Date: 20151213
  Transmission Date: 20160305
  Serious: Yes (Hospitalization)
  Sender: FDA-Public Use
  Company Number: HR-TEVA-618104ISR

PATIENT
  Age: 67 Year
  Sex: Female

DRUGS (2)
  1. RISPERIDONE. [Suspect]
     Active Substance: RISPERIDONE
     Indication: DEMENTIA ALZHEIMER^S TYPE
     Dosage: 1 MILLIGRAM DAILY;
     Route: 065
  2. OXAZEPAM. [Concomitant]
     Active Substance: OXAZEPAM
     Indication: DEMENTIA ALZHEIMER^S TYPE
     Dosage: 15 MILLIGRAM DAILY;
     Route: 065

REACTIONS (1)
  - Pleurothotonus [Recovering/Resolving]
